FAERS Safety Report 19268879 (Version 1)
Quarter: 2021Q2

REPORT INFORMATION
  Report Type: Spontaneous
  Country: DE (occurrence: DE)
  Receive Date: 20210518
  Receipt Date: 20210518
  Transmission Date: 20210717
  Serious: Yes (Hospitalization, Other)
  Sender: FDA-Public Use
  Company Number: NVSC2021DE104851

PATIENT
  Sex: Male

DRUGS (1)
  1. VALSARTAN. [Suspect]
     Active Substance: VALSARTAN
     Indication: PRODUCT USED FOR UNKNOWN INDICATION
     Dosage: UNK
     Route: 065

REACTIONS (11)
  - Product contamination [Unknown]
  - Bladder cancer [Unknown]
  - Urethral pain [Unknown]
  - Haemorrhage [Unknown]
  - Pain [Unknown]
  - Insomnia [Unknown]
  - Testis cancer [Unknown]
  - Bladder transitional cell carcinoma recurrent [Unknown]
  - Depression [Unknown]
  - Bladder pain [Unknown]
  - Abdominal pain [Unknown]

NARRATIVE: CASE EVENT DATE: 20190212
